FAERS Safety Report 7678565-6 (Version None)
Quarter: 2011Q3

REPORT INFORMATION
  Report Type: 
  Country: None (occurrence: None)
  Receive Date: 20110811
  Receipt Date: 20110805
  Transmission Date: 20111222
  Serious: Yes (Death, Life-Threatening)
  Sender: FDA-Public Use
  Company Number: GB-PFIZER INC-2011128318

PATIENT
  Age: 21 Month
  Sex: Male

DRUGS (17)
  1. TEICOPLANIN [Concomitant]
     Dosage: 130 MG, UNK
     Dates: start: 20110507
  2. ETOPOSIDE [Suspect]
     Indication: MYELODYSPLASTIC SYNDROME
  3. ACICLOVIR [Concomitant]
     Dosage: 300 MG, UNK
     Dates: start: 20110531
  4. PIPERACILLIN AND TAZOBACTAM [Concomitant]
     Dosage: 1170 MG, UNK
     Dates: start: 20110531
  5. GEMTUZUMAB OZOGAMICIN [Suspect]
     Indication: ACUTE MYELOID LEUKAEMIA
     Dosage: 6 MG, UNK
     Dates: start: 20110601
  6. CYTARABINE [Suspect]
     Indication: ACUTE MYELOID LEUKAEMIA
     Dosage: 60 MG, UNK
     Dates: start: 20110601
  7. RASBURICASE [Concomitant]
     Dosage: 2.6 MG, UNK
     Dates: start: 20110531
  8. GENTAMICIN [Concomitant]
     Dosage: 90 MG, UNK
     Dates: start: 20110601
  9. DAUNORUBICIN HCL [Suspect]
     Indication: ACUTE MYELOID LEUKAEMIA
     Dosage: UNK
     Dates: start: 20110601
  10. AMBISOME [Concomitant]
     Dosage: 40 MG, UNK
     Dates: start: 20110603
  11. GEMTUZUMAB OZOGAMICIN [Suspect]
     Indication: MYELODYSPLASTIC SYNDROME
  12. CYTARABINE [Suspect]
     Indication: MYELODYSPLASTIC SYNDROME
  13. PARACETAMOL [Concomitant]
     Dosage: 135 MG, UNK
     Dates: start: 20110531
  14. ETOPOSIDE [Suspect]
     Indication: ACUTE MYELOID LEUKAEMIA
     Dosage: UNK
     Dates: start: 20110601
  15. DAUNORUBICIN HCL [Suspect]
     Indication: MYELODYSPLASTIC SYNDROME
  16. METOCLOPRAMIDE [Concomitant]
     Dosage: 1 MG, UNK
     Dates: start: 20110531
  17. ONDANSETRON [Concomitant]
     Dosage: 2 MG, UNK
     Dates: start: 20110531

REACTIONS (1)
  - OBSTRUCTIVE AIRWAYS DISORDER [None]
